FAERS Safety Report 4681989-2 (Version None)
Quarter: 2005Q2

REPORT INFORMATION
  Report Type: 
  Country: None (occurrence: None)
  Receive Date: 20050526
  Receipt Date: 20050301
  Transmission Date: 20051028
  Serious: Yes (Hospitalization)
  Sender: FDA-Public Use
  Company Number: US-JNJFOC-20050200959

PATIENT
  Age: 49 Year
  Sex: Male
  Weight: 61.6892 kg

DRUGS (2)
  1. RISPERDAL [Suspect]
     Indication: SCHIZOPHRENIA
     Dosage: 25 MG, 1 IN 2 WEEK, INTRA-MUSCULAR
     Route: 030
     Dates: start: 20050127
  2. RISPERIDONE (TABLETS) RISPERIDONE [Concomitant]

REACTIONS (2)
  - PSYCHOTIC DISORDER [None]
  - RASH GENERALISED [None]
